FAERS Safety Report 15369015 (Version 1)
Quarter: 2018Q3

REPORT INFORMATION
  Report Type: Spontaneous
  Country: BE (occurrence: BE)
  Receive Date: 20180911
  Receipt Date: 20180911
  Transmission Date: 20181010
  Serious: Yes (Other)
  Sender: FDA-Public Use
  Company Number: BE-BAXTER-2018BAX023052

PATIENT
  Age: 64 Year
  Sex: Male

DRUGS (1)
  1. SEVOFLURANE BAXTER 100%, LIQUIDE POUR INHALATION PAR VAPEUR [Suspect]
     Active Substance: SEVOFLURANE
     Indication: SEDATION
     Route: 055

REACTIONS (1)
  - Nephrogenic diabetes insipidus [Unknown]
